FAERS Safety Report 6390887-8 (Version None)
Quarter: 2009Q4

REPORT INFORMATION
  Report Type: 
  Country: None (occurrence: None)
  Receive Date: 20091003
  Receipt Date: 20090924
  Transmission Date: 20100525
  Serious: No
  Sender: FDA-Public Use
  Company Number: 6054788

PATIENT
  Sex: Female

DRUGS (3)
  1. LEVOTHYROXINE SODIUM [Suspect]
     Indication: DRUG USE FOR UNKNOWN INDICATION
     Dosage: (62.5 MCG), ORAL
     Route: 048
  2. INDERAL [Suspect]
     Indication: HYPERTENSION
     Dosage: 5-10 MG (5 MG, 1-2 TIMES DAILY), ORAL
     Route: 048
  3. LEXOTANIL (BROMAZEPAM) [Suspect]
     Indication: SLEEP DISORDER
     Dosage: 1.5 MG (1.5 MG, 1 IN 1 D), ORAL
     Route: 048

REACTIONS (3)
  - HEADACHE [None]
  - HYPERTENSION [None]
  - SWEAT GLAND DISORDER [None]
